FAERS Safety Report 12137173 (Version 1)
Quarter: 2016Q1

REPORT INFORMATION
  Report Type: Spontaneous
  Country: US (occurrence: None)
  Receive Date: 20160301
  Receipt Date: 20160301
  Transmission Date: 20160526
  Serious: Yes (Other)
  Sender: FDA-Public Use
  Company Number: None

PATIENT
  Age: 78 Year
  Sex: Male
  Weight: 70 kg

DRUGS (2)
  1. NIVOLUMAB [Suspect]
     Active Substance: NIVOLUMAB
     Indication: MALIGNANT MELANOMA
     Dosage: Q2 WEEKS
     Route: 042
     Dates: start: 20151111, end: 20160229
  2. IPILIMUMAB [Concomitant]
     Active Substance: IPILIMUMAB

REACTIONS (2)
  - Haemoglobin increased [None]
  - Haematocrit increased [None]
